FAERS Safety Report 14382310 (Version 1)
Quarter: 2018Q1

REPORT INFORMATION
  Report Type: Spontaneous
  Country: US (occurrence: US)
  Receive Date: 20180112
  Receipt Date: 20180112
  Transmission Date: 20180509
  Serious: No
  Sender: FDA-Public Use
  Company Number: US-TEVA-2018-US-844203

PATIENT
  Sex: Female

DRUGS (1)
  1. CEFDINIR. [Suspect]
     Active Substance: CEFDINIR
     Route: 065

REACTIONS (4)
  - Drug hypersensitivity [Unknown]
  - Pain [Unknown]
  - Urticaria [Unknown]
  - Pruritus [Unknown]
